FAERS Safety Report 6070492-3 (Version None)
Quarter: 2009Q1

REPORT INFORMATION
  Report Type: 
  Country: None (occurrence: None)
  Receive Date: 20090209
  Receipt Date: 20090129
  Transmission Date: 20090719
  Serious: Yes (Hospitalization)
  Sender: FDA-Public Use
  Company Number: FR-MERCK-0902USA00446

PATIENT
  Age: 65 Year
  Sex: Male

DRUGS (7)
  1. ZOCOR [Suspect]
     Indication: HYPERCHOLESTEROLAEMIA
     Route: 048
  2. JANUVIA [Suspect]
     Indication: TYPE 2 DIABETES MELLITUS
     Route: 048
     Dates: start: 20081023, end: 20090109
  3. STAGID [Suspect]
     Indication: TYPE 2 DIABETES MELLITUS
     Route: 048
     Dates: end: 20090112
  4. CIBACEN [Concomitant]
     Route: 048
  5. ALLOPURINOL [Concomitant]
     Route: 048
  6. NOVO-NORM [Concomitant]
     Indication: TYPE 2 DIABETES MELLITUS
     Route: 048
  7. PROCTOLOG [Concomitant]
     Route: 054

REACTIONS (3)
  - DIARRHOEA [None]
  - HEPATOCELLULAR INJURY [None]
  - HYPERTRANSAMINASAEMIA [None]
